FAERS Safety Report 8827606 (Version 1)
Quarter: 2012Q4

REPORT INFORMATION
  Report Type: 
  Country: US (occurrence: US)
  Receive Date: 20121008
  Receipt Date: 20121008
  Transmission Date: 20130627
  Serious: No
  Sender: FDA-Public Use
  Company Number: US-009507513-1210USA000488

PATIENT
  Sex: Male

DRUGS (3)
  1. SINGULAIR [Suspect]
     Indication: ASTHMA
     Dosage: 4 mg, qd
     Route: 048
     Dates: start: 2010, end: 201101
  2. SINGULAIR [Suspect]
     Dosage: 4 mg, qd
     Route: 048
     Dates: start: 201201
  3. SINGULAIR [Suspect]
     Dosage: 4 mg, UNK

REACTIONS (1)
  - Nightmare [Recovered/Resolved]
